FAERS Safety Report 7572817-6 (Version None)
Quarter: 2011Q2

REPORT INFORMATION
  Report Type: 
  Country: None (occurrence: None)
  Receive Date: 20110627
  Receipt Date: 20110624
  Transmission Date: 20111010
  Serious: Yes (Other)
  Sender: FDA-Public Use
  Company Number: US-PFIZER INC-2011141234

PATIENT
  Sex: Female
  Weight: 63.492 kg

DRUGS (3)
  1. CHANTIX [Suspect]
     Indication: SMOKING CESSATION THERAPY
     Dosage: 0.5 MG, 1X/DAY
     Route: 048
     Dates: start: 20110601, end: 20110601
  2. ESTRACE [Concomitant]
     Indication: HYSTERECTOMY
     Dosage: 2 MG, UNK
  3. CHANTIX [Suspect]
     Dosage: UNK, TWO TIMES A DAY
     Route: 048
     Dates: start: 20110601

REACTIONS (6)
  - IRRITABILITY [None]
  - ANXIETY [None]
  - AGGRESSION [None]
  - NAUSEA [None]
  - INSOMNIA [None]
  - ANGER [None]
